FAERS Safety Report 6237587-2 (Version None)
Quarter: 2009Q2

REPORT INFORMATION
  Report Type: 
  Country: None (occurrence: None)
  Receive Date: 20090619
  Receipt Date: 20090612
  Transmission Date: 20091009
  Serious: Yes (Death)
  Sender: FDA-Public Use
  Company Number: US-GILEAD-2009-0022585

PATIENT
  Sex: Female
  Weight: 120.76 kg

DRUGS (30)
  1. LETAIRIS [Suspect]
     Indication: PULMONARY ARTERIAL HYPERTENSION
     Route: 048
     Dates: start: 20080801
  2. OXYGEN [Concomitant]
  3. COUMADIN [Concomitant]
  4. BUMEX [Concomitant]
  5. PRINIVIL [Concomitant]
  6. DETROL LA [Concomitant]
  7. ALBUTEROL [Concomitant]
  8. ADVAIR HFA [Concomitant]
  9. NITROGLYCERIN [Concomitant]
  10. KLONOPIN [Concomitant]
  11. LANTUS [Concomitant]
  12. SOMA [Concomitant]
  13. LODINE [Concomitant]
  14. ALLOPURINOL [Concomitant]
  15. LYRICA [Concomitant]
  16. CYMBALTA [Concomitant]
  17. ZYMAR [Concomitant]
  18. XALATAN [Concomitant]
  19. NYSTATIN [Concomitant]
  20. VICODIN ES [Concomitant]
  21. TRIAMCINOLONE [Concomitant]
  22. CRESTOR [Concomitant]
  23. POTASSIUM CHLORIDE [Concomitant]
  24. ATARAX [Concomitant]
  25. OXYCODONE HCL [Concomitant]
  26. OXYCODONE HCL AND ACETAMINOPHEN [Concomitant]
  27. NEXIUM [Concomitant]
  28. ROBINUL [Concomitant]
  29. DULCOLAX [Concomitant]
  30. MIRALAX [Concomitant]

REACTIONS (3)
  - CHRONIC OBSTRUCTIVE PULMONARY DISEASE [None]
  - COR PULMONALE [None]
  - RESPIRATORY FAILURE [None]
